FAERS Safety Report 5771479-8 (Version None)
Quarter: 2008Q2

REPORT INFORMATION
  Report Type: 
  Country: None (occurrence: None)
  Receive Date: 20080611
  Receipt Date: 20080603
  Transmission Date: 20081010
  Serious: Yes (Hospitalization)
  Sender: FDA-Public Use
  Company Number: 144-C5013-07110555

PATIENT
  Age: 74 Year
  Sex: Female

DRUGS (2)
  1. CC-5013 (LENALIDOMIDE) (CAPSULES) [Suspect]
     Indication: MULTIPLE MYELOMA
     Dosage: 15 MG, DAILY, ORAL
     Route: 048
     Dates: start: 20070727, end: 20071122
  2. DEXAMETHASONE TAB [Suspect]
     Indication: MULTIPLE MYELOMA
     Dosage: 20 MG, DAILY X4 DAYS EVERY 4 WEEKS, ORAL
     Route: 048
     Dates: start: 20070727, end: 20071118

REACTIONS (3)
  - BLADDER DISORDER [None]
  - ESCHERICHIA URINARY TRACT INFECTION [None]
  - REFUSAL OF TREATMENT BY PATIENT [None]
